FAERS Safety Report 9679436 (Version 1)
Quarter: 2013Q4

REPORT INFORMATION
  Report Type: Spontaneous
  Country: US (occurrence: US)
  Receive Date: 20131109
  Receipt Date: 20131109
  Transmission Date: 20140711
  Serious: No
  Sender: FDA-Public Use
  Company Number: US-SANOFI-AVENTIS-2013SA046562

PATIENT
  Age: 61 Year
  Sex: Female

DRUGS (3)
  1. ALLEGRA-D, 24 HR [Suspect]
     Indication: SEASONAL ALLERGY
     Dosage: DOSE:D 24HR
     Route: 048
     Dates: start: 20130420
  2. ANTIHYPERTENSIVES [Concomitant]
     Indication: HYPERTENSION
  3. CLARITIN-D [Concomitant]

REACTIONS (1)
  - Constipation [Not Recovered/Not Resolved]
